FAERS Safety Report 17268454 (Version 1)
Quarter: 2020Q1

REPORT INFORMATION
  Report Type: Spontaneous
  Country: US (occurrence: US)
  Receive Date: 20191223
  Receipt Date: 20191223
  Transmission Date: 20200409
  Serious: No
  Sender: FDA-Public Use
  Company Number: None

PATIENT
  Age: 37 Year
  Sex: Female

DRUGS (1)
  1. VAPING CBD OIL [Suspect]
     Active Substance: CANNABIDIOL\DEVICE\HERBALS

REACTIONS (5)
  - Inflammatory marker increased [None]
  - Lung infiltration [None]
  - Traumatic lung injury [None]
  - Dyspnoea [None]
  - Cough [None]

NARRATIVE: CASE EVENT DATE: 20190719
